FAERS Safety Report 17517198 (Version 1)
Quarter: 2020Q1

REPORT INFORMATION
  Report Type: Spontaneous
  Country: US (occurrence: US)
  Receive Date: 20200307
  Receipt Date: 20200307
  Transmission Date: 20200409
  Serious: Yes (Hospitalization, Other)
  Sender: FDA-Public Use
  Company Number: None

PATIENT
  Age: 25 Year
  Sex: Female
  Weight: 60.75 kg

DRUGS (4)
  1. CLOZAPINE. [Suspect]
     Active Substance: CLOZAPINE
     Indication: MENTAL DISORDER
     Dates: start: 20090110
  2. MULTIVITAMIN [Concomitant]
     Active Substance: VITAMINS
  3. CLOZAPINE. [Suspect]
     Active Substance: CLOZAPINE
     Indication: AUTISM SPECTRUM DISORDER
     Dates: start: 20090110
  4. CITALOPRAM [Concomitant]
     Active Substance: CITALOPRAM HYDROBROMIDE

REACTIONS (1)
  - Small intestinal obstruction [None]

NARRATIVE: CASE EVENT DATE: 20190307
